FAERS Safety Report 9032957 (Version 1)
Quarter: 2013Q1

REPORT INFORMATION
  Report Type: Spontaneous
  Country: US (occurrence: US)
  Receive Date: 20130128
  Receipt Date: 20130128
  Transmission Date: 20140127
  Serious: Yes (Other)
  Sender: FDA-Public Use
  Company Number: US-JNJFOC-20130109100

PATIENT
  Sex: Female

DRUGS (2)
  1. REMICADE [Suspect]
     Indication: COLITIS ULCERATIVE
     Route: 042
     Dates: start: 2010
  2. METHOTREXATE [Suspect]
     Indication: ARTHRALGIA
     Route: 065
     Dates: start: 2012, end: 2012

REACTIONS (6)
  - Bone loss [Not Recovered/Not Resolved]
  - Meniscus injury [Recovered/Resolved]
  - Gastritis bacterial [Not Recovered/Not Resolved]
  - Candida infection [Unknown]
  - Nausea [Recovered/Resolved]
  - Vomiting [Recovered/Resolved]
